FAERS Safety Report 15027214 (Version 1)
Quarter: 2018Q2

REPORT INFORMATION
  Report Type: Spontaneous
  Country: DE (occurrence: DE)
  Receive Date: 20180619
  Receipt Date: 20180619
  Transmission Date: 20180711
  Serious: Yes (Hospitalization)
  Sender: FDA-Public Use
  Company Number: DE-SUN PHARMACEUTICAL INDUSTRIES LTD-2018RR-176011

PATIENT

DRUGS (25)
  1. 5-FLUOROURACIL [Suspect]
     Active Substance: FLUOROURACIL
     Route: 040
     Dates: start: 20151001, end: 20151001
  2. CIPROBAY [Concomitant]
     Active Substance: CIPROFLOXACIN
     Dosage: 500 MG, UNK
     Route: 048
     Dates: start: 20160209, end: 20160213
  3. CIPROBAY [Concomitant]
     Active Substance: CIPROFLOXACIN
     Dosage: 500 MG, UNK
     Route: 048
     Dates: start: 20160113, end: 20160117
  4. UNACID [Concomitant]
     Indication: URINARY TRACT INFECTION
     Dosage: 2-0-2
     Route: 048
     Dates: start: 20160817, end: 20160821
  5. MCP [Concomitant]
     Active Substance: METOCLOPRAMIDE HYDROCHLORIDE
     Indication: PAIN
     Route: 048
     Dates: start: 20150811
  6. BEVACIZUMAB. [Suspect]
     Active Substance: BEVACIZUMAB
     Dosage: 375 MG
     Route: 042
     Dates: start: 20150903, end: 20150903
  7. FOLINIC ACID [Suspect]
     Active Substance: LEUCOVORIN
     Dosage: 380 MG, UNK
     Route: 042
     Dates: start: 20151001, end: 20151001
  8. ATROPIN [Concomitant]
     Active Substance: ATROPINE
     Indication: PRODUCT USED FOR UNKNOWN INDICATION
     Dosage: FREQUENCY: CYCLICAL
     Route: 058
     Dates: start: 20150820, end: 20160309
  9. FILGRASTIM [Concomitant]
     Active Substance: FILGRASTIM
     Indication: NEUTROPENIA
     Dosage: 30 MIU. ()
     Route: 058
     Dates: start: 20150825, end: 20160309
  10. ONDANSETRON [Concomitant]
     Active Substance: ONDANSETRON
     Indication: VOMITING
     Route: 048
     Dates: start: 20150903
  11. IRINOTECAN [Suspect]
     Active Substance: IRINOTECAN
     Dosage: DAILY DOSE: 360 MG MILLGRAM(S) EVERY 2 WEEKS
     Route: 042
     Dates: start: 20151001, end: 20151001
  12. FERRO SANOL [Concomitant]
     Active Substance: FERROUS GLYCINE SULFATE
     Indication: IRON DEFICIENCY ANAEMIA
     Route: 048
     Dates: start: 20151021, end: 20151031
  13. CIPROBAY [Concomitant]
     Active Substance: CIPROFLOXACIN
     Indication: URINARY TRACT INFECTION
     Route: 048
     Dates: start: 20160524, end: 20160529
  14. METAMIZOL [Concomitant]
     Active Substance: METAMIZOLE SODIUM
     Indication: PAIN
     Route: 048
     Dates: start: 20150811
  15. 5-FLUOROURACIL [Suspect]
     Active Substance: FLUOROURACIL
     Indication: COLORECTAL CANCER METASTATIC
     Dosage: DAILY DOSE: 2400 MG MILLGRAM(S) EVERY 2 WEEKS
     Route: 042
     Dates: start: 20150820, end: 20150822
  16. 5-FLUOROURACIL [Suspect]
     Active Substance: FLUOROURACIL
     Dosage: 2280 MG, UNK
     Route: 042
     Dates: start: 20151001, end: 20151003
  17. BEVACIZUMAB. [Suspect]
     Active Substance: BEVACIZUMAB
     Indication: COLORECTAL CANCER METASTATIC
     Dosage: THERAPY RESTARTED
     Route: 042
  18. BEVACIZUMAB. [Suspect]
     Active Substance: BEVACIZUMAB
     Dosage: 360 MG THERAPY INTERRUPTED
     Route: 042
     Dates: start: 20151001, end: 20151001
  19. IRINOTECAN [Suspect]
     Active Substance: IRINOTECAN
     Indication: COLORECTAL CANCER METASTATIC
     Route: 042
     Dates: start: 20150820, end: 20150820
  20. FOLINIC ACID [Suspect]
     Active Substance: LEUCOVORIN
     Indication: COLORECTAL CANCER METASTATIC
     Dosage: DAILY DOSE: 400 MG MILLGRAM(S) EVERY 2 WEEKS
     Route: 042
     Dates: start: 20150820, end: 20150820
  21. DEXAMETHASONE. [Concomitant]
     Active Substance: DEXAMETHASONE
     Indication: VOMITING
     Dosage: FREQUENCY: CYCLICAL
     Route: 042
     Dates: start: 20150820
  22. OXALIPLATIN. [Suspect]
     Active Substance: OXALIPLATIN
     Indication: COLORECTAL CANCER METASTATIC
     Dosage: DAILY DOSE: 85 MG MILLGRAM(S) EVERY 2 WEEKS
     Route: 042
     Dates: start: 20151001, end: 20151001
  23. OXALIPLATIN. [Suspect]
     Active Substance: OXALIPLATIN
     Dosage: 85 MG, UNK
     Route: 042
     Dates: start: 20150820, end: 20150820
  24. 5-FLUOROURACIL [Suspect]
     Active Substance: FLUOROURACIL
     Dosage: DAILY DOSE: 400 MG MILLGRAM(S) EVERY 2 WEEKS
     Route: 040
     Dates: start: 20150820, end: 20150820
  25. GRANISETRON [Concomitant]
     Active Substance: GRANISETRON
     Indication: VOMITING
     Dosage: FREQUENCY: CYCLICAL
     Route: 042
     Dates: start: 20150820

REACTIONS (1)
  - Tumour perforation [Recovered/Resolved]

NARRATIVE: CASE EVENT DATE: 20151006
